FAERS Safety Report 23938914 (Version 1)
Quarter: 2024Q2

REPORT INFORMATION
  Report Type: Spontaneous
  Country: US (occurrence: US)
  Receive Date: 20240604
  Receipt Date: 20240604
  Transmission Date: 20240716
  Serious: Yes (Hospitalization)
  Sender: FDA-Public Use
  Company Number: US-MYLANLABS-2024M1050480

PATIENT
  Age: 23 Year
  Sex: Male

DRUGS (2)
  1. LITHIUM [Suspect]
     Active Substance: LITHIUM
     Indication: Bipolar disorder
     Dosage: 600 MILLIGRAM, BID; MORNING AND AFTERNOON
     Route: 065
  2. LITHIUM [Suspect]
     Active Substance: LITHIUM
     Dosage: 300 MILLIGRAM, QD; AT BEDTIME
     Route: 065

REACTIONS (2)
  - Hypernatraemia [Recovered/Resolved]
  - Nephrogenic diabetes insipidus [Recovered/Resolved]
